FAERS Safety Report 15394728 (Version 1)
Quarter: 2018Q3

REPORT INFORMATION
  Report Type: Spontaneous
  Country: BR (occurrence: BR)
  Receive Date: 20180918
  Receipt Date: 20180918
  Transmission Date: 20181010
  Serious: Yes (Other)
  Sender: FDA-Public Use
  Company Number: BR-ABBVIE-18P-020-2369588-00

PATIENT
  Sex: Female
  Weight: 21 kg

DRUGS (1)
  1. DEPAKOTE [Suspect]
     Active Substance: DIVALPROEX SODIUM
     Indication: EPILEPSY
     Dosage: 3 CAPSULES;1 CAPSULE IN THE MORNING/2 CAPSULES IN THE NIGHT;START: OVER 2 YEARS AGO
     Route: 048
     Dates: start: 201607

REACTIONS (6)
  - Off label use [Not Recovered/Not Resolved]
  - Seizure [Recovered/Resolved]
  - Drug administered to patient of inappropriate age [Not Recovered/Not Resolved]
  - Malaise [Recovered/Resolved]
  - Product quality issue [Unknown]
  - Product availability issue [Unknown]

NARRATIVE: CASE EVENT DATE: 2018
